FAERS Safety Report 25342956 (Version 1)
Quarter: 2025Q2

REPORT INFORMATION
  Report Type: Report from Study
  Country: US (occurrence: US)
  Receive Date: 20250521
  Receipt Date: 20250521
  Transmission Date: 20250716
  Serious: Yes (Other)
  Sender: TAKEDA
  Company Number: US-TAKEDA-2022TUS045537

PATIENT
  Sex: Female

DRUGS (1)
  1. VEDOLIZUMAB [Suspect]
     Active Substance: VEDOLIZUMAB
     Indication: Product used for unknown indication

REACTIONS (5)
  - Paralysis [Unknown]
  - Hypoaesthesia [Unknown]
  - Drug ineffective [Unknown]
  - Poor quality sleep [Unknown]
  - Constipation [Unknown]
